FAERS Safety Report 4968282-5 (Version None)
Quarter: 2006Q2

REPORT INFORMATION
  Report Type: 
  Country: None (occurrence: None)
  Receive Date: 20060405
  Receipt Date: 20060325
  Transmission Date: 20061013
  Serious: Yes (Hospitalization)
  Sender: FDA-Public Use
  Company Number: 2006037736

PATIENT
  Age: 24 Year
  Sex: Female

DRUGS (1)
  1. SOLU-MEDROL [Suspect]
     Indication: MULTIPLE SCLEROSIS
     Dosage: 1 GRAM, INTRAVENOUS
     Route: 042
     Dates: start: 20060313, end: 20060313

REACTIONS (7)
  - CONFUSIONAL STATE [None]
  - EYELIDS PRURITUS [None]
  - IRRITABILITY [None]
  - NYSTAGMUS [None]
  - PHARMACEUTICAL PRODUCT COMPLAINT [None]
  - PRURITUS [None]
  - RASH [None]
